FAERS Safety Report 10209315 (Version 1)
Quarter: 2014Q2

REPORT INFORMATION
  Report Type: Spontaneous
  Country: US (occurrence: US)
  Receive Date: 20140530
  Receipt Date: 20140530
  Transmission Date: 20141212
  Serious: No
  Sender: FDA-Public Use
  Company Number: US-TEVA-484516USA

PATIENT
  Sex: Female

DRUGS (2)
  1. PROAIR HFA [Suspect]
     Route: 055
     Dates: start: 20140523
  2. SPIRIVA [Concomitant]

REACTIONS (2)
  - Heart rate increased [Recovered/Resolved]
  - Product taste abnormal [Not Recovered/Not Resolved]
